FAERS Safety Report 11365401 (Version 1)
Quarter: 2015Q3

REPORT INFORMATION
  Report Type: Spontaneous
  Country: US (occurrence: US)
  Receive Date: 20150811
  Receipt Date: 20150811
  Transmission Date: 20151125
  Serious: No
  Sender: FDA-Public Use
  Company Number: US-ELI_LILLY_AND_COMPANY-US201507009771

PATIENT
  Age: 60 Year
  Sex: Female

DRUGS (2)
  1. METFORMIN [Concomitant]
     Active Substance: METFORMIN HYDROCHLORIDE
     Indication: PRODUCT USED FOR UNKNOWN INDICATION
     Dosage: UNK, UNKNOWN
     Route: 065
  2. TRULICITY [Suspect]
     Active Substance: DULAGLUTIDE
     Indication: BLOOD GLUCOSE INCREASED
     Dosage: 0.75 MG, WEEKLY (1/W)
     Route: 065
     Dates: start: 20150630

REACTIONS (4)
  - Decreased appetite [Unknown]
  - Injection site pain [Unknown]
  - Weight decreased [Unknown]
  - Injection site bruising [Unknown]

NARRATIVE: CASE EVENT DATE: 20150707
